FAERS Safety Report 20968760 (Version 1)
Quarter: 2022Q2

REPORT INFORMATION
  Report Type: Report from Study
  Country: DE (occurrence: DE)
  Receive Date: 20220616
  Receipt Date: 20220616
  Transmission Date: 20220721
  Serious: Yes (Hospitalization)
  Sender: FDA-Public Use
  Company Number: DE-CELGENE-DEU-20210809395

PATIENT
  Age: 82 Year
  Sex: Female

DRUGS (28)
  1. DEXAMETHASONE [Suspect]
     Active Substance: DEXAMETHASONE
     Indication: Product used for unknown indication
     Dosage: DEXAMETHASONE ORAL
     Route: 065
     Dates: start: 20200929, end: 20201005
  2. DEXAMETHASONE [Suspect]
     Active Substance: DEXAMETHASONE
     Dosage: DEXAMETHASONE ORAL
     Route: 065
     Dates: start: 20200702, end: 20200708
  3. DEXAMETHASONE [Suspect]
     Active Substance: DEXAMETHASONE
     Dosage: DEXAMETHASONE ORAL
     Route: 048
     Dates: start: 20200611, end: 20200701
  4. DEXAMETHASONE [Suspect]
     Active Substance: DEXAMETHASONE
     Dosage: DEXAMETHASONE ORAL
     Route: 065
     Dates: start: 20200709, end: 20200712
  5. DEXAMETHASONE [Suspect]
     Active Substance: DEXAMETHASONE
     Dosage: DEXAMETHASONE ORAL
     Route: 048
     Dates: start: 20200908, end: 20200928
  6. DEXAMETHASONE [Suspect]
     Active Substance: DEXAMETHASONE
     Dosage: DEXAMETHASONE ORAL
     Route: 048
     Dates: start: 20210518, end: 20210607
  7. DEXAMETHASONE [Suspect]
     Active Substance: DEXAMETHASONE
     Dosage: DEXAMETHASONE ORAL
     Route: 048
     Dates: start: 20200713, end: 20200802
  8. DEXAMETHASONE [Suspect]
     Active Substance: DEXAMETHASONE
     Dosage: DEXAMETHASONE ORAL
     Route: 048
     Dates: start: 20200811, end: 20200831
  9. DEXAMETHASONE [Suspect]
     Active Substance: DEXAMETHASONE
     Dosage: DEXAMETHASONE ORAL
     Route: 048
     Dates: start: 20201006, end: 20201026
  10. DEXAMETHASONE [Suspect]
     Active Substance: DEXAMETHASONE
     Dosage: DEXAMETHASONE ORAL
     Route: 065
     Dates: start: 20200803, end: 20200810
  11. DEXAMETHASONE [Suspect]
     Active Substance: DEXAMETHASONE
     Dosage: DEXAMETHASONE ORAL
     Route: 048
     Dates: start: 20210420, end: 20210510
  12. DEXAMETHASONE [Suspect]
     Active Substance: DEXAMETHASONE
     Dosage: DEXAMETHASONE ORAL
     Route: 065
     Dates: start: 20200901, end: 20200907
  13. DEXAMETHASONE [Suspect]
     Active Substance: DEXAMETHASONE
     Dosage: DEXAMETHASONE ORAL
     Route: 048
     Dates: start: 20210323, end: 20210412
  14. REVLIMID [Suspect]
     Active Substance: LENALIDOMIDE
     Indication: Plasma cell myeloma
     Dosage: 15 MILLIGRAM
     Route: 048
     Dates: start: 20200908, end: 20200928
  15. REVLIMID [Suspect]
     Active Substance: LENALIDOMIDE
     Dosage: 15 MILLIGRAM, FREQUENCY: 1 DAY
     Route: 048
     Dates: start: 20200713, end: 20200802
  16. REVLIMID [Suspect]
     Active Substance: LENALIDOMIDE
     Dosage: 10 MILLIGRAM, FREQUENCY: 1 DAY
     Route: 048
     Dates: start: 20210518, end: 20210607
  17. REVLIMID [Suspect]
     Active Substance: LENALIDOMIDE
     Route: 065
     Dates: start: 20200803, end: 20200810
  18. REVLIMID [Suspect]
     Active Substance: LENALIDOMIDE
     Dosage: 10 MILLIGRAM, FREQUENCY: 1 DAY
     Route: 048
     Dates: start: 20210420, end: 20210510
  19. REVLIMID [Suspect]
     Active Substance: LENALIDOMIDE
     Route: 065
     Dates: start: 20200709, end: 20200712
  20. REVLIMID [Suspect]
     Active Substance: LENALIDOMIDE
     Dosage: 15 MILLIGRAM, FREQUENCY: 1 DAY
     Route: 048
     Dates: start: 20200611, end: 20200701
  21. REVLIMID [Suspect]
     Active Substance: LENALIDOMIDE
     Route: 065
     Dates: start: 20200929, end: 20201005
  22. REVLIMID [Suspect]
     Active Substance: LENALIDOMIDE
     Dosage: 15 MILLIGRAM, FREQUENCY: 1 DAY
     Route: 048
     Dates: start: 20200811, end: 20200831
  23. REVLIMID [Suspect]
     Active Substance: LENALIDOMIDE
     Route: 065
     Dates: start: 20200702, end: 20200708
  24. REVLIMID [Suspect]
     Active Substance: LENALIDOMIDE
     Route: 065
     Dates: start: 20200901, end: 20200907
  25. REVLIMID [Suspect]
     Active Substance: LENALIDOMIDE
     Dosage: 15 MILLIGRAM, FREQUENCY: 1 DAY
     Route: 048
     Dates: start: 20210323, end: 20210412
  26. REVLIMID [Suspect]
     Active Substance: LENALIDOMIDE
     Dosage: 15 MILLIGRAM, FREQUENCY: 1 DAY
     Route: 048
     Dates: start: 20201006, end: 20201026
  27. DARATUMUMAB [Suspect]
     Active Substance: DARATUMUMAB
     Indication: Product used for unknown indication
     Route: 041
     Dates: start: 20200817, end: 20201124
  28. DARATUMUMAB [Suspect]
     Active Substance: DARATUMUMAB
     Route: 041
     Dates: start: 20200611, end: 20200804

REACTIONS (1)
  - Gastritis haemorrhagic [Recovered/Resolved]

NARRATIVE: CASE EVENT DATE: 20210630
